FAERS Safety Report 8583498-7 (Version None)
Quarter: 2012Q3

REPORT INFORMATION
  Report Type: 
  Country: None (occurrence: None)
  Receive Date: 20120809
  Receipt Date: 20120803
  Transmission Date: 20120928
  Serious: No
  Sender: FDA-Public Use
  Company Number: US-B.I. PHARMACEUTICALS,INC./RIDGEFIELD-2012-BP-17523BP

PATIENT
  Age: 56 Year
  Sex: Female

DRUGS (3)
  1. ALENDRONATE SODIUM [Concomitant]
     Indication: OSTEOPOROSIS
     Route: 048
  2. LEVOTHYROXINE SODIUM [Concomitant]
     Indication: HYPOTHYROIDISM
     Route: 048
  3. SPIRIVA [Suspect]
     Indication: HYPERSENSITIVITY
     Dosage: 18 MCG
     Route: 055
     Dates: start: 20120601

REACTIONS (1)
  - FEELING JITTERY [None]
